FAERS Safety Report 7117467-0 (Version None)
Quarter: 2010Q4

REPORT INFORMATION
  Report Type: 
  Country: None (occurrence: None)
  Receive Date: 20101122
  Receipt Date: 20101116
  Transmission Date: 20110411
  Serious: Yes (Hospitalization)
  Sender: FDA-Public Use
  Company Number: DE-PFIZER INC-2010150230

PATIENT
  Age: 63 Year
  Sex: Male
  Weight: 106 kg

DRUGS (8)
  1. AMLODIPINE BESILATE [Suspect]
     Dosage: 5 MG, 1X/DAY
     Route: 048
     Dates: start: 20051020
  2. BISOPROLOL [Suspect]
     Dosage: 5 MG, 1X/DAY
     Dates: start: 19950518, end: 20100222
  3. ATACAND [Suspect]
     Dosage: UNK MG, UNK
     Route: 048
     Dates: start: 20100315
  4. ALISKIREN/HYDROCHLOROTHIAZIDE [Suspect]
     Indication: HYPERTENSION
     Dosage: 150/12.5MG PER DAY
     Route: 048
     Dates: start: 20090302
  5. ASPIRIN [Concomitant]
     Dosage: UNK
     Dates: start: 19910219
  6. METOPROLOL [Concomitant]
     Dosage: UNK
  7. PRAVASTATIN [Concomitant]
     Dosage: UNK
     Dates: start: 20090724
  8. CLOPIDOGREL [Concomitant]
     Dosage: UNK
     Dates: start: 20090918, end: 20091018

REACTIONS (11)
  - AMAUROSIS FUGAX [None]
  - ANGINA UNSTABLE [None]
  - BLOOD PRESSURE INADEQUATELY CONTROLLED [None]
  - BRADYCARDIA [None]
  - CORONARY ANGIOPLASTY [None]
  - CORONARY ARTERIAL STENT INSERTION [None]
  - CORONARY ARTERY DISEASE [None]
  - CORONARY ARTERY STENOSIS [None]
  - HYPERTENSIVE CRISIS [None]
  - MYOCARDIAL INFARCTION [None]
  - TRANSIENT ISCHAEMIC ATTACK [None]
